FAERS Safety Report 11085796 (Version 3)
Quarter: 2015Q3

REPORT INFORMATION
  Report Type: Spontaneous
  Country: US (occurrence: US)
  Receive Date: 20150503
  Receipt Date: 20150715
  Transmission Date: 20151125
  Serious: Yes (Hospitalization, Other)
  Sender: FDA-Public Use
  Company Number: US-JNJFOC-20150403214

PATIENT
  Age: 65 Year
  Sex: Male

DRUGS (6)
  1. XARELTO [Suspect]
     Active Substance: RIVAROXABAN
     Indication: CEREBROVASCULAR ACCIDENT PROPHYLAXIS
     Route: 048
     Dates: start: 20130226, end: 20130310
  2. XARELTO [Suspect]
     Active Substance: RIVAROXABAN
     Indication: THROMBOSIS PROPHYLAXIS
     Route: 048
     Dates: start: 20130226, end: 20130310
  3. XARELTO [Suspect]
     Active Substance: RIVAROXABAN
     Indication: ATRIAL FIBRILLATION
     Route: 048
     Dates: start: 20130226, end: 20130310
  4. FUROSEMIDE. [Concomitant]
     Active Substance: FUROSEMIDE
     Route: 065
  5. LOVENOX [Suspect]
     Active Substance: ENOXAPARIN SODIUM
     Indication: PROPHYLAXIS
     Route: 065
     Dates: start: 2013, end: 2013
  6. HYDROCODONE [Concomitant]
     Active Substance: HYDROCODONE
     Route: 065

REACTIONS (3)
  - Coronary artery bypass [Unknown]
  - Haemorrhage [Unknown]
  - Internal haemorrhage [Unknown]

NARRATIVE: CASE EVENT DATE: 20130401
